FAERS Safety Report 6154128-9 (Version None)
Quarter: 2009Q2

REPORT INFORMATION
  Report Type: 
  Country: None (occurrence: None)
  Receive Date: 20090414
  Receipt Date: 20090401
  Transmission Date: 20091009
  Serious: Yes (Other)
  Sender: FDA-Public Use
  Company Number: US-BAYER-200911034BCC

PATIENT
  Age: 8 Month
  Sex: Male
  Weight: 8.165 kg

DRUGS (2)
  1. CAMPHO-PHENIQUE COLD SORE TREATMENT WITH DRYING ACTION GEL [Suspect]
     Indication: DRUG USE FOR UNKNOWN INDICATION
  2. VITAMINS [Concomitant]

REACTIONS (3)
  - BRAIN INJURY [None]
  - PSYCHOMOTOR HYPERACTIVITY [None]
  - TREMOR [None]
